FAERS Safety Report 5127076-0 (Version None)
Quarter: 2006Q4

REPORT INFORMATION
  Report Type: 
  Country: None (occurrence: None)
  Receive Date: 20061013
  Receipt Date: 20060912
  Transmission Date: 20070319
  Serious: No
  Sender: FDA-Public Use
  Company Number: JP-BRISTOL-MYERS SQUIBB COMPANY-13509617

PATIENT
  Age: 70 Year
  Sex: Male

DRUGS (4)
  1. TAXOL [Suspect]
     Indication: NON-SMALL CELL LUNG CANCER
     Route: 041
     Dates: start: 20060731, end: 20060821
  2. PARAPLATIN [Suspect]
     Indication: NON-SMALL CELL LUNG CANCER
     Route: 041
     Dates: start: 20060731, end: 20060821
  3. DEXAMETHASONE SODIUM PHOSPHATE [Concomitant]
     Route: 042
     Dates: start: 20060731, end: 20060821
  4. CHLORPHENIRAMINE MALEATE [Concomitant]
     Route: 042
     Dates: start: 20060731, end: 20060821

REACTIONS (2)
  - DELIRIUM [None]
  - RASH [None]
